FAERS Safety Report 13623644 (Version 1)
Quarter: 2017Q2

REPORT INFORMATION
  Report Type: Spontaneous
  Country: US (occurrence: US)
  Receive Date: 20170608
  Receipt Date: 20170608
  Transmission Date: 20170830
  Serious: No
  Sender: FDA-Public Use
  Company Number: US-TEVA-744325ACC

PATIENT
  Age: 79 Year
  Sex: Male
  Weight: 68.03 kg

DRUGS (3)
  1. MUCUS D [Suspect]
     Active Substance: GUAIFENESIN\PSEUDOEPHEDRINE HYDROCHLORIDE
     Indication: UPPER-AIRWAY COUGH SYNDROME
     Dosage: 1DF=PSEUDOEPHEDRINE HYDROCHLORIDE 60 MG/GUAIFENESIN 600 MG
     Route: 048
     Dates: start: 20170211, end: 20170213
  2. ATORVASTATIN [Concomitant]
     Active Substance: ATORVASTATIN
  3. ATENOLOL. [Concomitant]
     Active Substance: ATENOLOL

REACTIONS (1)
  - Dysuria [Recovered/Resolved]

NARRATIVE: CASE EVENT DATE: 20170212
